FAERS Safety Report 12702228 (Version 2)
Quarter: 2016Q3

REPORT INFORMATION
  Report Type: Spontaneous
  Country: JP (occurrence: JP)
  Receive Date: 20160831
  Receipt Date: 20160906
  Transmission Date: 20161109
  Serious: Yes (Other)
  Sender: FDA-Public Use
  Company Number: JP-EMD SERONO-8103381

PATIENT
  Age: 8 Year
  Sex: Male

DRUGS (1)
  1. SAIZEN [Suspect]
     Active Substance: SOMATROPIN
     Indication: BODY HEIGHT BELOW NORMAL
     Dosage: 0.245MG/KG/DAY (STARTING FROM 2 YEARS OLD)
     Route: 065

REACTIONS (3)
  - Diabetic ketoacidosis [Unknown]
  - Obstructive airways disorder [Unknown]
  - Weight decreased [Unknown]
